FAERS Safety Report 6760234-8 (Version None)
Quarter: 2010Q2

REPORT INFORMATION
  Report Type: 
  Country: None (occurrence: None)
  Receive Date: 20100608
  Receipt Date: 20010223
  Transmission Date: 20101027
  Serious: No
  Sender: FDA-Public Use
  Company Number: 2001SUS0149

PATIENT
  Age: 23 Year
  Sex: Female

DRUGS (6)
  1. SUSTIVA [Suspect]
     Indication: HIV INFECTION
     Dosage: 600 MG AES#DOSE_FREQUENCY: QD
     Route: 048
     Dates: end: 20010223
  2. COMBIVIR [Concomitant]
  3. ZIAGEN [Concomitant]
  4. MULTI-VITAMIN [Concomitant]
  5. TRIPHASIL-21 [Concomitant]
  6. VIRAMUNE [Concomitant]
     Dates: start: 20010223

REACTIONS (1)
  - PREGNANCY [None]
